FAERS Safety Report 6252045-7 (Version None)
Quarter: 2009Q2

REPORT INFORMATION
  Report Type: 
  Country: None (occurrence: None)
  Receive Date: 20090630
  Receipt Date: 20060612
  Transmission Date: 20091009
  Serious: Yes (Hospitalization)
  Sender: FDA-Public Use
  Company Number: US-ROCHE-638670

PATIENT
  Sex: Male

DRUGS (16)
  1. ENFUVIRTIDE [Suspect]
     Route: 065
     Dates: start: 20040915, end: 20080404
  2. NORVIR [Concomitant]
     Dates: start: 19891107, end: 19980101
  3. NORVIR [Concomitant]
     Dates: start: 20050602, end: 20080814
  4. NORVIR [Concomitant]
     Dates: start: 20050602
  5. VIDEX [Concomitant]
     Dates: start: 19930401, end: 19940801
  6. HIVID [Concomitant]
     Dates: start: 19940801, end: 19960101
  7. INVIRASE [Concomitant]
     Dates: start: 19960101, end: 19980101
  8. INVIRASE [Concomitant]
     Dates: start: 19980326, end: 20040915
  9. VIRAMUNE [Concomitant]
     Dates: start: 19970616, end: 19980301
  10. VIRACEPT [Concomitant]
     Dates: start: 19970601, end: 19980301
  11. EPIVIR [Concomitant]
     Dates: start: 19970101, end: 20040915
  12. ZERIT [Concomitant]
     Dates: start: 19980326, end: 20020501
  13. SUSTIVA [Concomitant]
     Dates: start: 19981116, end: 20020501
  14. VIDEX EC [Concomitant]
     Dosage: FREQUENCY: QD
     Dates: start: 20040915, end: 20080814
  15. VIREAD [Concomitant]
     Dosage: FREQUENCY: QD
     Dates: start: 20040915, end: 20080814
  16. BACTRIM DS [Concomitant]
     Dosage: FREQUENCY: QD
     Dates: start: 19980101, end: 20060317

REACTIONS (1)
  - ANAEMIA [None]
